FAERS Safety Report 13027363 (Version 1)
Quarter: 2016Q4

REPORT INFORMATION
  Report Type: Spontaneous
  Country: GB (occurrence: GB)
  Receive Date: 20161214
  Receipt Date: 20161214
  Transmission Date: 20170207
  Serious: Yes (Hospitalization)
  Sender: FDA-Public Use
  Company Number: GB-BION-005786

PATIENT
  Age: 55 Year
  Sex: Male

DRUGS (6)
  1. ETANERCEPT [Concomitant]
     Active Substance: ETANERCEPT
  2. CALCITRIOL. [Suspect]
     Active Substance: CALCITRIOL
     Indication: PSORIASIS
     Dosage: EXCEEDED THE RECOMMENDED 30 G DAILY DOSE, WEEKLY ACCUMULATIVE DOSE WAS THEREFORE 80 G
     Route: 061
  3. COLECALCIFEROL [Interacting]
     Active Substance: CHOLECALCIFEROL
     Indication: PROPHYLAXIS
  4. ACITRETIN. [Concomitant]
     Active Substance: ACITRETIN
  5. CALCIUM CARBONATE/CALCIUM LACTOGLUCONATE [Interacting]
     Active Substance: CALCIUM CARBONATE\CALCIUM LACTATE GLUCONATE
     Indication: PROPHYLAXIS
     Route: 048
  6. ETORICOXIB [Suspect]
     Active Substance: ETORICOXIB
     Indication: ARTHRALGIA

REACTIONS (6)
  - Medication error [Not Recovered/Not Resolved]
  - Hypercalcaemia [Recovered/Resolved]
  - Lethargy [None]
  - Drug interaction [Recovered/Resolved]
  - Acute kidney injury [Recovered/Resolved]
  - Thirst [None]
